FAERS Safety Report 13526036 (Version 1)
Quarter: 2017Q2

REPORT INFORMATION
  Report Type: Spontaneous
  Country: US (occurrence: US)
  Receive Date: 20170509
  Receipt Date: 20170509
  Transmission Date: 20170830
  Serious: No
  Sender: FDA-Public Use
  Company Number: US-ASTRAZENECA-2017SE45803

PATIENT
  Age: 22490 Day
  Sex: Male
  Weight: 74.8 kg

DRUGS (5)
  1. BRILINTA [Suspect]
     Active Substance: TICAGRELOR
     Indication: STENT PLACEMENT
     Route: 048
     Dates: start: 20170113
  2. ATORVASTATIN [Concomitant]
     Active Substance: ATORVASTATIN
     Indication: ILL-DEFINED DISORDER
     Dosage: HALF A TABLET FOUR TIMES PER WEEK
     Route: 048
     Dates: start: 2004
  3. ASPIRIN. [Concomitant]
     Active Substance: ASPIRIN
     Indication: ILL-DEFINED DISORDER
     Route: 048
     Dates: start: 2007
  4. LOVAZA [Concomitant]
     Active Substance: OMEGA-3-ACID ETHYL ESTERS
  5. TOPROL XL [Suspect]
     Active Substance: METOPROLOL SUCCINATE
     Indication: ILL-DEFINED DISORDER
     Dosage: GENERIC 25 MG DAILY
     Route: 048
     Dates: start: 2001

REACTIONS (4)
  - Arterial occlusive disease [Unknown]
  - Vascular calcification [Unknown]
  - Chest discomfort [Unknown]
  - Dyspnoea [Not Recovered/Not Resolved]

NARRATIVE: CASE EVENT DATE: 20170106
